FAERS Safety Report 6523108-3 (Version None)
Quarter: 2009Q4

REPORT INFORMATION
  Report Type: 
  Country: None (occurrence: None)
  Receive Date: 20091222
  Receipt Date: 20091208
  Transmission Date: 20100525
  Serious: Yes (Other)
  Sender: FDA-Public Use
  Company Number: AE-2009-312

PATIENT
  Age: 46 Year
  Sex: Female

DRUGS (3)
  1. HYDROCHLOROTHIAZIDE [Suspect]
  2. LISINOPRIL [Suspect]
  3. HYDROCHLOROTHIAZIDE [Concomitant]

REACTIONS (1)
  - SMALL BOWEL ANGIOEDEMA [None]
